FAERS Safety Report 12535472 (Version 1)
Quarter: 2016Q3

REPORT INFORMATION
  Report Type: Spontaneous
  Country: ES (occurrence: ES)
  Receive Date: 20160707
  Receipt Date: 20160707
  Transmission Date: 20161109
  Serious: Yes (Hospitalization, Disabling)
  Sender: FDA-Public Use
  Company Number: PHHY2016ES091774

PATIENT
  Age: 57 Year
  Sex: Male

DRUGS (1)
  1. TASIGNA [Suspect]
     Active Substance: NILOTINIB
     Indication: CHRONIC MYELOID LEUKAEMIA
     Dosage: 80 MG, UNK
     Route: 048
     Dates: start: 201309

REACTIONS (2)
  - Sudden hearing loss [Recovered/Resolved with Sequelae]
  - Diplopia [Recovered/Resolved]

NARRATIVE: CASE EVENT DATE: 20160405
